FAERS Safety Report 14229501 (Version 1)
Quarter: 2017Q4

REPORT INFORMATION
  Report Type: Spontaneous
  Country: FR (occurrence: FR)
  Receive Date: 20171128
  Receipt Date: 20171128
  Transmission Date: 20180321
  Serious: Yes (Hospitalization, Other)
  Sender: FDA-Public Use
  Company Number: FR-MERCK KGAA-2036126

PATIENT
  Age: 77 Year
  Sex: Female

DRUGS (3)
  1. LEVOTHYROX 100 NF [Suspect]
     Active Substance: LEVOTHYROXINE SODIUM
     Dates: end: 20170825
  2. NOVOTHYROX [Suspect]
     Active Substance: LEVOTHYROXINE SODIUM
     Indication: PRODUCT USED FOR UNKNOWN INDICATION
     Dates: start: 201705
  3. MAGNE B6 (DYNAMAG) [Concomitant]

REACTIONS (10)
  - Neuromyopathy [None]
  - Alopecia [None]
  - Feeling abnormal [None]
  - Muscle spasms [None]
  - Muscle spasms [None]
  - Dyspnoea [Not Recovered/Not Resolved]
  - Fibrin D dimer increased [None]
  - Headache [None]
  - Pulmonary embolism [None]
  - Myalgia [None]

NARRATIVE: CASE EVENT DATE: 2017
